FAERS Safety Report 16940540 (Version 1)
Quarter: 2019Q4

REPORT INFORMATION
  Report Type: Spontaneous
  Country: US (occurrence: US)
  Receive Date: 20191018
  Receipt Date: 20191018
  Transmission Date: 20200122
  Serious: Yes (Death, Hospitalization)
  Sender: FDA-Public Use
  Company Number: None

PATIENT
  Age: 80 Year
  Sex: Male
  Weight: 76.5 kg

DRUGS (1)
  1. WARFARIN [Suspect]
     Active Substance: WARFARIN
     Indication: CEREBROVASCULAR ACCIDENT
     Route: 048

REACTIONS (6)
  - International normalised ratio increased [None]
  - Haematuria [None]
  - Pulmonary haemorrhage [None]
  - Shock haemorrhagic [None]
  - Ventricular fibrillation [None]
  - Cardiac arrest [None]

NARRATIVE: CASE EVENT DATE: 20190601
